FAERS Safety Report 10492980 (Version 1)
Quarter: 2014Q4

REPORT INFORMATION
  Report Type: Spontaneous
  Country: US (occurrence: US)
  Receive Date: 20141002
  Receipt Date: 20141002
  Transmission Date: 20150528
  Serious: No
  Sender: FDA-Public Use
  Company Number: US-GLAXOSMITHKLINE-A1077714A

PATIENT
  Sex: Male

DRUGS (7)
  1. FUROSEMIDE. [Concomitant]
     Active Substance: FUROSEMIDE
  2. LOVASTATIN. [Concomitant]
     Active Substance: LOVASTATIN
  3. WARFARIN [Concomitant]
     Active Substance: WARFARIN
  4. PROVENTIL [Concomitant]
     Active Substance: ALBUTEROL
  5. ZETIA [Concomitant]
     Active Substance: EZETIMIBE
  6. ADVAIR HFA [Suspect]
     Active Substance: FLUTICASONE PROPIONATE\SALMETEROL XINAFOATE
     Indication: PNEUMOCONIOSIS
     Dosage: 1PUFF TWICE PER DAY
     Route: 055
     Dates: start: 2000
  7. GLIPIZIDE. [Concomitant]
     Active Substance: GLIPIZIDE

REACTIONS (3)
  - Drug administration error [Recovered/Resolved]
  - Oral pain [Recovered/Resolved]
  - Product quality issue [Unknown]

NARRATIVE: CASE EVENT DATE: 2008
